FAERS Safety Report 7776030-9 (Version None)
Quarter: 2011Q3

REPORT INFORMATION
  Report Type: 
  Country: None (occurrence: None)
  Receive Date: 20110923
  Receipt Date: 20110920
  Transmission Date: 20111222
  Serious: Yes (Hospitalization)
  Sender: FDA-Public Use
  Company Number: DE-GENENTECH-324729

PATIENT
  Age: 47 Year
  Sex: Male

DRUGS (2)
  1. RITUXIMAB [Suspect]
     Indication: B-CELL LYMPHOMA
     Dosage: UNK
     Route: 065
     Dates: start: 20110501
  2. BENDAMUSTINA [Concomitant]
     Indication: B-CELL LYMPHOMA
     Dosage: UNK
     Dates: start: 20110501

REACTIONS (1)
  - CHYLOTHORAX [None]
